FAERS Safety Report 18071368 (Version 2)
Quarter: 2020Q4

REPORT INFORMATION
  Report Type: Spontaneous
  Country: NL (occurrence: NL)
  Receive Date: 20200727
  Receipt Date: 20201019
  Transmission Date: 20210113
  Serious: Yes (Other)
  Sender: FDA-Public Use
  Company Number: PHHY2019NL189987

PATIENT
  Age: 67 Year
  Sex: Female
  Weight: 80 kg

DRUGS (26)
  1. XGEVA [Suspect]
     Active Substance: DENOSUMAB
     Dosage: UNK
     Route: 065
  2. CALCIUM CARBONATE W/COLECALCIFEROL [Concomitant]
     Active Substance: CALCIUM CARBONATE\CHOLECALCIFEROL
     Dosage: 1.25G/440IE (500MG CA)
     Route: 065
  3. LETROZOLE. [Suspect]
     Active Substance: LETROZOLE
     Indication: BREAST CANCER METASTATIC
     Dosage: 2.5 MG, QD
     Route: 048
     Dates: start: 20190524
  4. CALCIUM [Concomitant]
     Active Substance: CALCIUM
     Dosage: UNK
     Route: 065
  5. PEPPERMINT. [Concomitant]
     Active Substance: PEPPERMINT
     Indication: PRODUCT USED FOR UNKNOWN INDICATION
     Dosage: 182 MG
     Route: 065
  6. DEVIL^S CLA [Concomitant]
     Indication: PRODUCT USED FOR UNKNOWN INDICATION
     Dosage: 960 MG, QD(480 MILLIGRAM, BID)
     Route: 065
  7. CALCIUM [Concomitant]
     Active Substance: CALCIUM
     Indication: PRODUCT USED FOR UNKNOWN INDICATION
     Dosage: UNK
     Route: 065
  8. CALCIUM [Concomitant]
     Active Substance: CALCIUM
     Dosage: UNK
     Route: 065
  9. CALCIUM CARBONATE W/COLECALCIFEROL [Concomitant]
     Active Substance: CALCIUM CARBONATE\CHOLECALCIFEROL
     Dosage: 1.25G/440IE (500MG CA)
     Route: 065
  10. OMEPRAZOLE. [Concomitant]
     Active Substance: OMEPRAZOLE
     Dosage: 20 MG, QD (1-2 CAPSULES)
     Route: 065
  11. PALBOCICLIB [Concomitant]
     Active Substance: PALBOCICLIB
     Indication: PRODUCT USED FOR UNKNOWN INDICATION
     Dosage: 125 MG, QD
     Route: 065
  12. LETROZOLE. [Suspect]
     Active Substance: LETROZOLE
     Dosage: UNK
     Route: 065
  13. CALCIUM CARBONATE W/COLECALCIFEROL [Concomitant]
     Active Substance: CALCIUM CARBONATE\CHOLECALCIFEROL
     Dosage: 1.25G/440IE (500MG CA)
     Route: 065
  14. OMEPRAZOLE. [Concomitant]
     Active Substance: OMEPRAZOLE
     Indication: PRODUCT USED FOR UNKNOWN INDICATION
     Dosage: 40 MG, QD
     Route: 048
     Dates: start: 20190508
  15. CALCIUM CARBONATE W/COLECALCIFEROL [Concomitant]
     Active Substance: CALCIUM CARBONATE\CHOLECALCIFEROL
     Dosage: 1.25G/440IE (500MG CA), QD
     Route: 065
  16. DICLOFENAC/MISOPROSTOL [Concomitant]
     Active Substance: DICLOFENAC SODIUM\MISOPROSTOL
     Indication: PRODUCT USED FOR UNKNOWN INDICATION
     Dosage: 50MG/200UG, BID
     Route: 065
  17. VASELINE CETOMACROGOL CREAM [Concomitant]
     Indication: PRODUCT USED FOR UNKNOWN INDICATION
     Dosage: 2D-CR
     Route: 065
  18. HARPAGOPHYTUM PROCUMBENS [Concomitant]
     Active Substance: HARPAGOPHYTUM PROCUMBENS ROOT\HERBALS
     Indication: PRODUCT USED FOR UNKNOWN INDICATION
     Dosage: 480 MILLIGRAM, 2D1T
     Route: 065
  19. VASELINE CETOMACROGOL CREAM [Concomitant]
     Dosage: 2D-CR
     Route: 065
  20. VASELINE CETOMACROGOL CREAM [Concomitant]
     Dosage: 2D-CR
     Route: 065
  21. CLOBETASOL [Concomitant]
     Active Substance: CLOBETASOL
     Indication: PRODUCT USED FOR UNKNOWN INDICATION
     Dosage: UNK (0.5 MILLIGRAM PER GRAM,2D)
     Route: 065
  22. XGEVA [Suspect]
     Active Substance: DENOSUMAB
     Dosage: UNK
     Route: 058
  23. MOMETASON [Concomitant]
     Active Substance: MOMETASONE FUROATE
     Indication: PRODUCT USED FOR UNKNOWN INDICATION
     Dosage: 1 MG/G, QD
     Route: 065
  24. TETANUS TOXOID ADSORBED (VACCINE) [Concomitant]
     Active Substance: CLOSTRIDIUM TETANI TOXOID ANTIGEN (FORMALDEHYDE INACTIVATED)
     Indication: PRODUCT USED FOR UNKNOWN INDICATION
     Dosage: 80IE/ML FL 0.5ML UNK
     Route: 065
  25. XGEVA [Suspect]
     Active Substance: DENOSUMAB
     Indication: PROPHYLAXIS
     Dosage: 120 MILLIGRAM (1.7ML), Q4WK
     Route: 065
     Dates: start: 20190611
  26. CALCIUM CARBONATE W/COLECALCIFEROL [Concomitant]
     Active Substance: CALCIUM CARBONATE\CHOLECALCIFEROL
     Indication: PRODUCT USED FOR UNKNOWN INDICATION
     Dosage: 1 OT, QD (1.25G/440IE (500MG CA))
     Route: 065

REACTIONS (16)
  - Musculoskeletal discomfort [Unknown]
  - Skin haemorrhage [Unknown]
  - Skin abrasion [Unknown]
  - Urticaria [Recovered/Resolved]
  - Pyrexia [Unknown]
  - Arthralgia [Unknown]
  - Back pain [Not Recovered/Not Resolved]
  - Metastases to bone [Unknown]
  - Chills [Unknown]
  - White blood cell count decreased [Not Recovered/Not Resolved]
  - Eczema [Unknown]
  - Nausea [Unknown]
  - Rash erythematous [Unknown]
  - Oral mucosal erythema [Unknown]
  - Psoriasis [Recovered/Resolved]
  - Fall [Unknown]

NARRATIVE: CASE EVENT DATE: 2019
